FAERS Safety Report 10046961 (Version 1)
Quarter: 2014Q1

REPORT INFORMATION
  Report Type: Spontaneous
  Country: US (occurrence: US)
  Receive Date: 20140331
  Receipt Date: 20140331
  Transmission Date: 20141002
  Serious: No
  Sender: FDA-Public Use
  Company Number: US-BAYER-2014-039566

PATIENT
  Age: 23 Year
  Sex: Female

DRUGS (2)
  1. MIRENA [Suspect]
     Indication: CONTRACEPTION
     Dosage: 20 MCG/24HR, UNK
     Route: 015
     Dates: start: 20130513, end: 20140307
  2. MIRENA [Suspect]
     Indication: MENORRHAGIA

REACTIONS (3)
  - Menorrhagia [None]
  - Metrorrhagia [None]
  - Device expulsion [None]
